FAERS Safety Report 4368250-0 (Version None)
Quarter: 2004Q2

REPORT INFORMATION
  Report Type: 
  Country: None (occurrence: None)
  Receive Date: 20040527
  Receipt Date: 20040511
  Transmission Date: 20050107
  Serious: Yes (Hospitalization)
  Sender: FDA-Public Use
  Company Number: J200402185

PATIENT
  Age: 50 Year
  Sex: Male

DRUGS (4)
  1. (MYSLEE)                   ZOLPIDEM [Suspect]
     Indication: INSOMNIA
     Dosage: 10 MG
     Route: 048
     Dates: start: 20040201, end: 20040406
  2. LIPITOR (ATOEVASTATIN CALCIUM HYDRATE) [Concomitant]
  3. GASMOTIN (MOSAPRIDE CITRATE) [Concomitant]
  4. ROHYPNOL (FLUNITRAZEPAM) [Concomitant]

REACTIONS (7)
  - DEPRESSED LEVEL OF CONSCIOUSNESS [None]
  - DIALYSIS [None]
  - HEPATIC FUNCTION ABNORMAL [None]
  - HEPATITIS ALCOHOLIC [None]
  - HYPOGLYCAEMIA [None]
  - OVERDOSE [None]
  - RENAL IMPAIRMENT [None]
